FAERS Safety Report 4450385-5 (Version None)
Quarter: 2004Q3

REPORT INFORMATION
  Report Type: 
  Country: None (occurrence: None)
  Receive Date: 20040914
  Receipt Date: 20040908
  Transmission Date: 20050211
  Serious: Yes (Hospitalization)
  Sender: FDA-Public Use
  Company Number: MK200409-0073-1

PATIENT
  Age: 24 Year

DRUGS (1)
  1. CODEINE PHOSPHATE AND ACETAMINOPHEN [Suspect]
     Indication: HEADACHE
     Dosage: 20MG/500MG, ONE TIME

REACTIONS (1)
  - PANCREATITIS ACUTE [None]
